FAERS Safety Report 9844286 (Version 1)
Quarter: 2014Q1

REPORT INFORMATION
  Report Type: Report from Study
  Country: NL (occurrence: NL)
  Receive Date: 20140127
  Receipt Date: 20140127
  Transmission Date: 20141002
  Serious: Yes (Life-Threatening, Hospitalization)
  Sender: FDA-Public Use
  Company Number: NL-ROCHE-1336681

PATIENT
  Age: 47 Year
  Sex: 0

DRUGS (5)
  1. CAPECITABINE [Suspect]
     Indication: GASTRIC CANCER
     Dosage: MOST RECENT DOSE RECEIVED ON 26/AUG/2013
     Route: 048
     Dates: start: 20130702
  2. EPIRUBICIN [Suspect]
     Indication: GASTRIC CANCER
     Dosage: MOST RECENT DOSE RECEIVED ON 13/AUG/2013
     Route: 042
     Dates: start: 20130702
  3. CISPLATIN [Suspect]
     Indication: GASTRIC CANCER
     Dosage: MOST RECENT DOSE RECEIVED ON 13/AUG/2013
     Route: 042
     Dates: start: 20130702
  4. ESOMEPRAZOLE [Concomitant]
     Route: 065
  5. VANCOMYCIN [Concomitant]
     Route: 065
     Dates: start: 20131211, end: 20140113

REACTIONS (3)
  - Duodenal perforation [Recovered/Resolved]
  - Necrosis [Unknown]
  - Abdominal infection [Unknown]
